FAERS Safety Report 14289871 (Version 4)
Quarter: 2018Q1

REPORT INFORMATION
  Report Type: Spontaneous
  Country: JP (occurrence: JP)
  Receive Date: 20171215
  Receipt Date: 20180213
  Transmission Date: 20180509
  Serious: Yes (Life-Threatening, Other)
  Sender: FDA-Public Use
  Company Number: JP-BEH-2017085910

PATIENT
  Age: 81 Year
  Sex: Female
  Weight: 51.2 kg

DRUGS (20)
  1. HIZENTRA [Suspect]
     Active Substance: HUMAN IMMUNOGLOBULIN G
     Indication: HYPOGAMMAGLOBULINAEMIA
     Dosage: 12 G, BIW
     Route: 058
     Dates: start: 20171115
  2. HIZENTRA [Suspect]
     Active Substance: HUMAN IMMUNOGLOBULIN G
     Dosage: 6 G, OD
     Route: 058
     Dates: start: 20171220, end: 20171220
  3. NOVOLIN R [Concomitant]
     Active Substance: INSULIN HUMAN
     Dosage: 8 IU, OD
     Route: 058
     Dates: start: 201606
  4. LIXIANA [Concomitant]
     Active Substance: EDOXABAN TOSYLATE
     Dosage: 30 MG, UNK
     Route: 048
     Dates: start: 201412
  5. TAKEPRON [Concomitant]
     Active Substance: LANSOPRAZOLE
     Dosage: 15 MG, UNK
     Route: 048
     Dates: start: 201607
  6. HIZENTRA [Suspect]
     Active Substance: HUMAN IMMUNOGLOBULIN G
     Dosage: 4 UNK, UNK
     Route: 058
     Dates: start: 20171130, end: 20171130
  7. NOVOLIN [Concomitant]
     Active Substance: INSULIN HUMAN
     Dosage: 20 IU, UNK
     Route: 065
     Dates: start: 201606
  8. CANDESARTAN. [Concomitant]
     Active Substance: CANDESARTAN
     Dosage: 2 MG, OD
     Route: 048
     Dates: start: 201606
  9. KENKETU GLOVENIN-I [Concomitant]
     Active Substance: HUMAN IMMUNOGLOBULIN G
     Dosage: 30 G, OD
     Route: 065
     Dates: start: 20171213, end: 20171213
  10. HIZENTRA [Suspect]
     Active Substance: HUMAN IMMUNOGLOBULIN G
     Dosage: 12 G, UNK
     Route: 042
     Dates: start: 20171227, end: 20171227
  11. EDIROL [Concomitant]
     Active Substance: ELDECALCITOL
     Dosage: 0.75 MG, OD
     Route: 048
     Dates: start: 201501
  12. KENKETU GLOVENIN-I [Concomitant]
     Active Substance: HUMAN IMMUNOGLOBULIN G
     Dosage: UNK
     Route: 065
     Dates: start: 201605, end: 20171017
  13. HIZENTRA [Suspect]
     Active Substance: HUMAN IMMUNOGLOBULIN G
     Dosage: 4 G, OD
     Route: 058
     Dates: start: 20171129, end: 20171129
  14. HIZENTRA [Suspect]
     Active Substance: HUMAN IMMUNOGLOBULIN G
     Dosage: UNK
     Route: 058
     Dates: start: 20180110, end: 20180110
  15. MAGNESIUM OXIDE. [Concomitant]
     Active Substance: MAGNESIUM OXIDE
     Dosage: 250 MG, UNK
     Route: 048
     Dates: start: 201509
  16. SELBEX [Concomitant]
     Active Substance: TEPRENONE
     Dosage: 150 MG, TOT
     Route: 048
     Dates: start: 201611
  17. ZETIA [Concomitant]
     Active Substance: EZETIMIBE
     Dosage: 10 MG, OD
     Route: 048
     Dates: start: 201708
  18. HIZENTRA [Suspect]
     Active Substance: HUMAN IMMUNOGLOBULIN G
     Dosage: 4 G, OD
     Route: 058
     Dates: start: 20171201, end: 20171201
  19. NOVOLIN R [Concomitant]
     Active Substance: INSULIN HUMAN
     Dosage: 12 IU, OD
     Route: 058
     Dates: start: 201606
  20. PREDONINE [Concomitant]
     Active Substance: PREDNISOLONE
     Dosage: 5 MG, OD
     Route: 048
     Dates: start: 201411

REACTIONS (12)
  - Bacteraemia [Unknown]
  - Injection site erythema [Recovering/Resolving]
  - Injection site erythema [Recovering/Resolving]
  - Pyelonephritis [Recovered/Resolved]
  - Chills [Recovered/Resolved]
  - Anaemia [Unknown]
  - Haematuria [Recovered/Resolved]
  - Ureterolithiasis [Recovered/Resolved]
  - Pyelocaliectasis [Recovered/Resolved]
  - Pyrexia [Recovered/Resolved]
  - Abdominal pain [Recovered/Resolved]
  - Hypoalbuminaemia [Unknown]

NARRATIVE: CASE EVENT DATE: 20171130
